FAERS Safety Report 6155541-6 (Version None)
Quarter: 2009Q2

REPORT INFORMATION
  Report Type: 
  Country: None (occurrence: None)
  Receive Date: 20090413
  Receipt Date: 20090402
  Transmission Date: 20091009
  Serious: Yes (Other)
  Sender: FDA-Public Use
  Company Number: 236584

PATIENT
  Age: 17 Year
  Sex: Female

DRUGS (3)
  1. IRINOTECAN HCL [Suspect]
     Indication: RHABDOMYOSARCOMA
  2. VINORELBINE [Suspect]
     Indication: RHABDOMYOSARCOMA
  3. OXALIPLATIN [Suspect]
     Indication: RHABDOMYOSARCOMA

REACTIONS (2)
  - DRUG EXPOSURE DURING PREGNANCY [None]
  - PLACENTAL DISORDER [None]
